FAERS Safety Report 17934621 (Version 1)
Quarter: 2020Q2

REPORT INFORMATION
  Report Type: Spontaneous
  Country: US (occurrence: US)
  Receive Date: 20200623
  Receipt Date: 20200623
  Transmission Date: 20200714
  Serious: Yes (Other)
  Sender: FDA-Public Use
  Company Number: None

PATIENT
  Age: 55 Year
  Sex: Male

DRUGS (1)
  1. LEVOTHYROXINE. [Suspect]
     Active Substance: LEVOTHYROXINE
     Indication: HYPOTHYROIDISM
     Route: 048
     Dates: start: 20200312, end: 20200507

REACTIONS (3)
  - Wrong product administered [None]
  - Blood thyroid stimulating hormone increased [None]
  - Product dispensing error [None]

NARRATIVE: CASE EVENT DATE: 20200622
